FAERS Safety Report 5415794-6 (Version None)
Quarter: 2007Q3

REPORT INFORMATION
  Report Type: 
  Country: None (occurrence: None)
  Receive Date: 20070815
  Receipt Date: 20070810
  Transmission Date: 20080115
  Serious: Yes (Hospitalization, Other)
  Sender: FDA-Public Use
  Company Number: HQWYE166820JUL07

PATIENT
  Sex: Male
  Weight: 83 kg

DRUGS (8)
  1. CYCLOSPORINE [Suspect]
     Indication: PROPHYLAXIS AGAINST TRANSPLANT REJECTION
     Route: 048
     Dates: start: 20070122
  2. AMPHO-MORONAL [Concomitant]
     Indication: PROPHYLAXIS
     Dosage: 6 TIMES DAILY
     Route: 065
  3. CALCIUM ACETATE [Concomitant]
     Indication: HYPERPHOSPHATAEMIA
     Dosage: 3, ONCE DAILY
     Route: 065
  4. NORVASC [Concomitant]
     Indication: HYPERTENSION
     Dosage: 5 MG, FREQUENCY UNSPECIFIED
     Route: 065
  5. COZAAR [Concomitant]
     Indication: HYPERTENSION
     Dosage: 12.5 MG, FREQUENCY UNSPECIFIED
     Route: 065
  6. CALCITRIOL [Concomitant]
     Indication: MEDICAL DIET
     Dosage: ^0.25^, FREQUENCY UNKNOWN
     Route: 065
  7. PANTOPRAZOLE SODIUM [Concomitant]
     Indication: PROPHYLAXIS
     Dosage: 40 MG, FREQUENCY UNKNOWN
     Route: 065
  8. URSO FALK [Concomitant]
     Indication: CHOLESTASIS
     Dosage: 2 CAPS, 3 TIMES DAILY
     Route: 065

REACTIONS (1)
  - HEPATIC NEOPLASM MALIGNANT RECURRENT [None]
